FAERS Safety Report 5079500-X (Version None)
Quarter: 2006Q3

REPORT INFORMATION
  Report Type: 
  Country: None (occurrence: None)
  Receive Date: 20060814
  Receipt Date: 20050906
  Transmission Date: 20061208
  Serious: No
  Sender: FDA-Public Use
  Company Number: US-BRISTOL-MYERS SQUIBB COMPANY-13101506

PATIENT
  Age: 65 Year
  Sex: Male
  Weight: 82 kg

DRUGS (5)
  1. GLYBURIDE + METFORMIN HCL TABS [Suspect]
     Indication: DIABETES MELLITUS
     Dosage: DOSE: 5MG/500MG TABLET
  2. CAPTOPRIL [Concomitant]
  3. MULTI-VITAMIN [Concomitant]
  4. CO-Q-10 [Concomitant]
  5. FOLIC ACID [Concomitant]

REACTIONS (2)
  - SLEEP DISORDER [None]
  - SOMNOLENCE [None]
